FAERS Safety Report 15235281 (Version 1)
Quarter: 2018Q3

REPORT INFORMATION
  Report Type: Spontaneous
  Country: US (occurrence: US)
  Receive Date: 20180709
  Receipt Date: 20180709
  Transmission Date: 20181010
  Serious: Yes (Life-Threatening, Hospitalization)
  Sender: FDA-Public Use
  Company Number: None

PATIENT
  Age: 47 Year
  Sex: Male
  Weight: 101.25 kg

DRUGS (1)
  1. DOXYCYCLINE. [Suspect]
     Active Substance: DOXYCYCLINE
     Indication: SINUS CONGESTION
     Dosage: ?          QUANTITY:30 TABLET(S);?
     Route: 048
     Dates: start: 20180707, end: 20180707

REACTIONS (6)
  - Overdose [None]
  - Headache [None]
  - Migraine [None]
  - Oropharyngeal pain [None]
  - Toxicity to various agents [None]
  - Product storage error [None]

NARRATIVE: CASE EVENT DATE: 20180707
